FAERS Safety Report 17033715 (Version 3)
Quarter: 2020Q1

REPORT INFORMATION
  Report Type: Report from Study
  Country: CA (occurrence: CA)
  Receive Date: 20191114
  Receipt Date: 20200114
  Transmission Date: 20200409
  Serious: No
  Sender: FDA-Public Use
  Company Number: CA-BEH-2019109468

PATIENT
  Age: 51 Year
  Sex: Female

DRUGS (8)
  1. NUCALA [Concomitant]
     Active Substance: MEPOLIZUMAB
  2. HIZENTRA [Suspect]
     Active Substance: HUMAN IMMUNOGLOBULIN G
     Indication: PRIMARY IMMUNODEFICIENCY SYNDROME
     Dosage: 14 GRAM, QW
     Route: 058
     Dates: start: 2019
  3. DEXILANT [Concomitant]
     Active Substance: DEXLANSOPRAZOLE
  4. CALCIUM [Concomitant]
     Active Substance: CALCIUM
  5. MAGNESIUM [Concomitant]
     Active Substance: MAGNESIUM
  6. HIZENTRA [Suspect]
     Active Substance: HUMAN IMMUNOGLOBULIN G
     Dosage: 14 GRAM, QW
     Route: 058
  7. PREDNISONE. [Concomitant]
     Active Substance: PREDNISONE
  8. VITAMIN B2 [Concomitant]
     Active Substance: RIBOFLAVIN

REACTIONS (4)
  - Syringe issue [Unknown]
  - Swelling [Recovered/Resolved with Sequelae]
  - Injection site extravasation [Unknown]
  - Burning sensation [Recovered/Resolved with Sequelae]

NARRATIVE: CASE EVENT DATE: 2019
